FAERS Safety Report 10173270 (Version 1)
Quarter: 2014Q2

REPORT INFORMATION
  Report Type: Spontaneous
  Country: BR (occurrence: BR)
  Receive Date: 20140515
  Receipt Date: 20140515
  Transmission Date: 20141212
  Serious: Yes (Other)
  Sender: FDA-Public Use
  Company Number: BR-JNJFOC-20140506464

PATIENT
  Age: 49 Year
  Sex: Female
  Weight: 73 kg

DRUGS (5)
  1. REMICADE [Suspect]
     Indication: ANKYLOSING SPONDYLITIS
     Route: 042
     Dates: start: 201102
  2. REMICADE [Suspect]
     Indication: ANKYLOSING SPONDYLITIS
     Route: 042
     Dates: start: 20140319
  3. REMICADE [Suspect]
     Indication: COLITIS
     Route: 042
     Dates: start: 20140319
  4. REMICADE [Suspect]
     Indication: COLITIS
     Route: 042
     Dates: start: 201102
  5. AZATHIOPRINE [Concomitant]
     Indication: PAIN
     Route: 065

REACTIONS (3)
  - Hyperthyroidism [Not Recovered/Not Resolved]
  - Pharyngitis [Recovered/Resolved]
  - Pyrexia [Recovered/Resolved]
